FAERS Safety Report 16279124 (Version 2)
Quarter: 2019Q2

REPORT INFORMATION
  Report Type: Report from Study
  Country: None (occurrence: US)
  Receive Date: 20190506
  Receipt Date: 20190514
  Transmission Date: 20190711
  Serious: Yes (Other)
  Sender: FDA-Public Use
  Company Number: US-ABBVIE-19K-163-2766602-00

PATIENT
  Age: 36 Year
  Sex: Female

DRUGS (1)
  1. HUMIRA [Suspect]
     Active Substance: ADALIMUMAB
     Indication: RHEUMATOID ARTHRITIS
     Dosage: HUMIRA CF PEN
     Route: 058
     Dates: start: 20190401, end: 20190420

REACTIONS (9)
  - Hemiparesis [Unknown]
  - Tremor [Unknown]
  - Optic neuritis [Unknown]
  - Multiple sclerosis relapse [Recovering/Resolving]
  - Dysphemia [Unknown]
  - Diplopia [Unknown]
  - Heart rate increased [Recovered/Resolved]
  - Speech disorder [Recovering/Resolving]
  - Aphasia [Unknown]

NARRATIVE: CASE EVENT DATE: 2019
